FAERS Safety Report 10746115 (Version 1)
Quarter: 2015Q1

REPORT INFORMATION
  Report Type: Spontaneous
  Country: US (occurrence: US)
  Receive Date: 20150128
  Receipt Date: 20150128
  Transmission Date: 20150721
  Serious: No
  Sender: FDA-Public Use
  Company Number: US-ELI_LILLY_AND_COMPANY-US201501006602

PATIENT

DRUGS (1)
  1. CYMBALTA [Suspect]
     Active Substance: DULOXETINE HYDROCHLORIDE
     Indication: HEADACHE
     Dosage: 60 MG, UNKNOWN

REACTIONS (6)
  - Anger [Unknown]
  - Off label use [Unknown]
  - Emotional disorder [Unknown]
  - Muscle twitching [Unknown]
  - Paraesthesia [Unknown]
  - Drug withdrawal syndrome [Unknown]
